FAERS Safety Report 24284731 (Version 2)
Quarter: 2024Q4

REPORT INFORMATION
  Report Type: Spontaneous
  Country: FR (occurrence: FR)
  Receive Date: 20240905
  Receipt Date: 20241024
  Transmission Date: 20250114
  Serious: Yes (Hospitalization)
  Sender: IMMUNOCORE
  Company Number: FR-IMMUNOCORE, LTD-2024-IMC-002777

PATIENT

DRUGS (3)
  1. KIMMTRAK [Suspect]
     Active Substance: TEBENTAFUSP-TEBN
     Indication: Uveal melanoma
     Dosage: 68 MICROGRAM/WEEKLY
     Route: 042
     Dates: start: 20240131
  2. KIMMTRAK [Suspect]
     Active Substance: TEBENTAFUSP-TEBN
     Dosage: 68 MICROGRAM
     Route: 042
     Dates: start: 20240524, end: 20240524
  3. KIMMTRAK [Suspect]
     Active Substance: TEBENTAFUSP-TEBN
     Dosage: 68 MICROGRAM/WEEKLY
     Route: 042
     Dates: start: 20240705

REACTIONS (2)
  - Myocarditis [Not Recovered/Not Resolved]
  - Troponin increased [Recovered/Resolved]

NARRATIVE: CASE EVENT DATE: 20240527
